FAERS Safety Report 21594664 (Version 3)
Quarter: 2023Q1

REPORT INFORMATION
  Report Type: Spontaneous
  Country: US (occurrence: US)
  Receive Date: 20221115
  Receipt Date: 20230210
  Transmission Date: 20230417
  Serious: Yes (Hospitalization)
  Sender: FDA-Public Use
  Company Number: US-ELI_LILLY_AND_COMPANY-US202211005619

PATIENT
  Age: 49 Year
  Sex: Male
  Weight: 147.4 kg

DRUGS (3)
  1. MOUNJARO [Suspect]
     Active Substance: TIRZEPATIDE
     Indication: Body mass index increased
     Dosage: 2.5 MG, WEEKLY (1/W)
     Route: 065
     Dates: start: 20221031
  2. MOUNJARO [Suspect]
     Active Substance: TIRZEPATIDE
     Indication: Glucose tolerance impaired
     Dosage: 2.5 MG, WEEKLY (1/W)
     Route: 065
     Dates: start: 20221101
  3. MOUNJARO [Suspect]
     Active Substance: TIRZEPATIDE
     Indication: Body mass index increased
     Dosage: 5 MG, WEEKLY (1/W)
     Route: 065
     Dates: end: 20221101

REACTIONS (2)
  - Norovirus infection [Recovered/Resolved]
  - Extra dose administered [Recovering/Resolving]

NARRATIVE: CASE EVENT DATE: 20221101
